FAERS Safety Report 18740999 (Version 1)
Quarter: 2021Q1

REPORT INFORMATION
  Report Type: Spontaneous
  Country: US (occurrence: US)
  Receive Date: 20210114
  Receipt Date: 20210114
  Transmission Date: 20210419
  Serious: No
  Sender: FDA-Public Use
  Company Number: US-SA-2021SA008778

PATIENT
  Sex: Female

DRUGS (4)
  1. MULTAQ [Suspect]
     Active Substance: DRONEDARONE
     Dosage: UNK
  2. CARBAMAZEPINE. [Concomitant]
     Active Substance: CARBAMAZEPINE
  3. BRIVIACT [Concomitant]
     Active Substance: BRIVARACETAM
  4. LACOSAMIDE. [Concomitant]
     Active Substance: LACOSAMIDE

REACTIONS (3)
  - Dysarthria [Unknown]
  - Ammonia increased [Unknown]
  - Nervous system disorder [Unknown]
